FAERS Safety Report 20919578 (Version 1)
Quarter: 2022Q2

REPORT INFORMATION
  Report Type: Spontaneous
  Country: US (occurrence: US)
  Receive Date: 20220606
  Receipt Date: 20220606
  Transmission Date: 20220721
  Serious: No
  Sender: FDA-Public Use
  Company Number: US-drreddys-LIT/USA/22/0150742

PATIENT
  Age: 68 Year
  Sex: Female

DRUGS (2)
  1. CINACALCET HYDROCHLORIDE [Suspect]
     Active Substance: CINACALCET HYDROCHLORIDE
     Indication: Cutaneous calcification
     Dosage: LOW-DOSE
  2. SODIUM THIOSULFATE [Suspect]
     Active Substance: SODIUM THIOSULFATE
     Indication: Cutaneous calcification
     Route: 061

REACTIONS (1)
  - Hypocalcaemia [Unknown]
